FAERS Safety Report 5994404-3 (Version None)
Quarter: 2008Q4

REPORT INFORMATION
  Report Type: 
  Country: None (occurrence: None)
  Receive Date: 20081212
  Receipt Date: 20080909
  Transmission Date: 20090506
  Serious: No
  Sender: FDA-Public Use
  Company Number: US-ABBOTT-08P-163-0475020-00

PATIENT
  Sex: Female
  Weight: 68.1 kg

DRUGS (11)
  1. HUMIRA [Suspect]
     Indication: CROHN'S DISEASE
     Route: 058
     Dates: start: 20080908
  2. HUMIRA [Suspect]
  3. HUMIRA [Suspect]
  4. MESALAMINE [Concomitant]
     Indication: CROHN'S DISEASE
     Route: 048
  5. METRONIDAZOLE [Concomitant]
     Indication: CROHN'S DISEASE
     Route: 048
     Dates: start: 20080819
  6. PREDNISONE TAB [Concomitant]
     Indication: CROHN'S DISEASE
     Dosage: 30MG IN A.M., 25 MG IN P.M.
     Route: 048
     Dates: start: 20080501
  7. CLARINEX D 24 HOUR [Concomitant]
     Indication: SEASONAL ALLERGY
     Route: 048
  8. DULOXETINE HYDROCHLORIDE [Concomitant]
     Indication: DEPRESSION
     Route: 048
     Dates: start: 20080101
  9. REWASHA ENEMA [Concomitant]
     Indication: CROHN'S DISEASE
     Dates: start: 20080904
  10. LOMOTIL [Concomitant]
     Indication: CROHN'S DISEASE
     Route: 048
     Dates: start: 20080801
  11. ACETAMINOPHEN [Concomitant]
     Indication: PAIN
     Route: 048

REACTIONS (3)
  - INJECTION SITE PAIN [None]
  - PARAESTHESIA [None]
  - PERIPHERAL COLDNESS [None]
